FAERS Safety Report 9277646 (Version 3)
Quarter: 2013Q2

REPORT INFORMATION
  Report Type: Report from Study
  Country: US (occurrence: US)
  Receive Date: 20130508
  Receipt Date: 20130515
  Transmission Date: 20140414
  Serious: Yes (Death, Other)
  Sender: FDA-Public Use
  Company Number: PHEH2013US009665

PATIENT
  Age: 83 Year
  Sex: Female
  Weight: 63 kg

DRUGS (11)
  1. RECLAST [Suspect]
     Indication: OSTEOPOROSIS
     Dosage: 5 MG, YEARLY
     Route: 042
     Dates: start: 20120425
  2. ARICEPT [Concomitant]
     Dosage: 1 DF (BY MOUTH AT BEDTIME)
     Route: 048
     Dates: start: 20120425
  3. MYSOLINE [Concomitant]
     Dosage: 1 DF, BID
     Route: 048
     Dates: start: 20120329
  4. LOPRESSOR [Concomitant]
     Dosage: 1 DF, BID
     Route: 048
     Dates: start: 20120314
  5. TOVIAZ [Concomitant]
     Dosage: 1 DF, BID (BY MOUTH)
     Route: 048
     Dates: start: 20120229
  6. BUMEX [Concomitant]
     Dosage: 1 DF, UNK
     Route: 048
     Dates: start: 20120220
  7. MICARDIS [Concomitant]
     Dosage: 1 DF, UNK
     Route: 048
     Dates: start: 20120220
  8. KLOR-CON M10 [Concomitant]
     Dosage: 1 DF, UNK
     Route: 048
     Dates: start: 20120220
  9. PRILOSEC [Concomitant]
     Dosage: 1 DF, DAILY
     Dates: start: 20120220
  10. CELEXA [Concomitant]
     Dosage: 1 DF, DAILY
     Route: 048
     Dates: start: 20120220
  11. ANTIHISTAMINES [Concomitant]
     Dosage: UNK UKN, UNK

REACTIONS (3)
  - Haemorrhage intracranial [Fatal]
  - Mental disorder [Unknown]
  - Cerebral haematoma [Unknown]
